FAERS Safety Report 24031693 (Version 1)
Quarter: 2024Q2

REPORT INFORMATION
  Report Type: Spontaneous
  Country: US (occurrence: US)
  Receive Date: 20240629
  Receipt Date: 20240629
  Transmission Date: 20240715
  Serious: No
  Sender: FDA-Public Use
  Company Number: US-Accord-368472

PATIENT
  Sex: Female
  Weight: 83.01 kg

DRUGS (2)
  1. MYCOPHENOLATE MOFETIL [Suspect]
     Active Substance: MYCOPHENOLATE MOFETIL
     Indication: Organising pneumonia
     Route: 048
     Dates: start: 202002
  2. MYCOPHENOLATE MOFETIL [Suspect]
     Active Substance: MYCOPHENOLATE MOFETIL
     Indication: Organising pneumonia
     Dosage: 500MG TABLET EVERY MORNING AND 1/2 OF A 500MG TABLET EVERY EVENING, (250MG)
     Route: 048
     Dates: start: 202102

REACTIONS (2)
  - Wrong technique in product usage process [Unknown]
  - Drug effective for unapproved indication [Unknown]
